FAERS Safety Report 5565280-8 (Version None)
Quarter: 2007Q4

REPORT INFORMATION
  Report Type: 
  Country: None (occurrence: None)
  Receive Date: 20071218
  Receipt Date: 20020211
  Transmission Date: 20080405
  Serious: Yes (Death, Other)
  Sender: FDA-Public Use
  Company Number: GB-ROCHE-306827

PATIENT
  Age: 72 Year
  Sex: Female
  Weight: 61 kg

DRUGS (5)
  1. CYMEVENE [Suspect]
     Route: 042
     Dates: start: 20011120, end: 20011205
  2. AZATHIOPRINE [Concomitant]
     Route: 048
     Dates: start: 20011101, end: 20011205
  3. PREDNISOLONE [Concomitant]
     Route: 048
     Dates: start: 20011101, end: 20011205
  4. MESALAMINE [Concomitant]
     Route: 048
     Dates: start: 20011101, end: 20011205
  5. WARFARIN SODIUM [Concomitant]
     Dates: start: 20011101, end: 20011122

REACTIONS (2)
  - CYTOMEGALOVIRUS COLITIS [None]
  - INTERNATIONAL NORMALISED RATIO INCREASED [None]
